FAERS Safety Report 7134025-2 (Version None)
Quarter: 2010Q4

REPORT INFORMATION
  Report Type: 
  Country: None (occurrence: None)
  Receive Date: 20101203
  Receipt Date: 20101123
  Transmission Date: 20110411
  Serious: Yes (Hospitalization, Other)
  Sender: FDA-Public Use
  Company Number: TW-GENZYME-THYM-1002118

PATIENT
  Age: 52 Year
  Sex: Male

DRUGS (3)
  1. THYMOGLOBULIN [Suspect]
     Indication: APLASTIC ANAEMIA
  2. CYCLOSPORINE [Concomitant]
     Indication: APLASTIC ANAEMIA
  3. CORTICOSTEROID NOS [Concomitant]
     Indication: APLASTIC ANAEMIA

REACTIONS (6)
  - OSTEOMYELITIS [None]
  - PSOAS ABSCESS [None]
  - RENAL FAILURE ACUTE [None]
  - RESPIRATORY FAILURE [None]
  - SALMONELLOSIS [None]
  - SEPTIC SHOCK [None]
